FAERS Safety Report 15687010 (Version 3)
Quarter: 2019Q3

REPORT INFORMATION
  Report Type: Report from Study
  Country: IT (occurrence: IT)
  Receive Date: 20181204
  Receipt Date: 20190722
  Transmission Date: 20191004
  Serious: Yes (Other)
  Sender: FDA-Public Use
  Company Number: PHHY2018IT006575

PATIENT
  Age: 77 Year
  Sex: Female

DRUGS (11)
  1. TRAMETINIB [Suspect]
     Active Substance: TRAMETINIB
     Dosage: 2 OT, UNK
     Route: 048
     Dates: start: 20180207, end: 20180404
  2. TAFINLAR [Suspect]
     Active Substance: DABRAFENIB MESYLATE
     Dosage: 150 OT, UNK
     Route: 048
     Dates: start: 20180504
  3. TRAMETINIB [Suspect]
     Active Substance: TRAMETINIB
     Dosage: 2 OT, UNK
     Route: 048
     Dates: start: 20180412, end: 20180424
  4. TAFINLAR [Suspect]
     Active Substance: DABRAFENIB MESYLATE
     Dosage: 150 OT, UNK
     Route: 048
     Dates: start: 20180411, end: 20180424
  5. TRAMETINIB [Suspect]
     Active Substance: TRAMETINIB
     Dosage: 2 OT, UNK
     Route: 048
     Dates: start: 20180504
  6. AMLODIPINE [Concomitant]
     Active Substance: AMLODIPINE BESYLATE
     Indication: HYPERTENSION
     Dosage: 2.5 OT, UNK
     Route: 048
     Dates: start: 20180323
  7. TAFINLAR [Suspect]
     Active Substance: DABRAFENIB MESYLATE
     Dosage: 150 OT, UNK
     Route: 048
     Dates: start: 20180207, end: 20180404
  8. MODURETIC 5-50 [Concomitant]
     Active Substance: AMILORIDE HYDROCHLORIDE\HYDROCHLOROTHIAZIDE
     Indication: HYPERTENSION
     Dosage: 55 OT, UNK
     Route: 048
     Dates: start: 20180207
  9. TAFINLAR [Suspect]
     Active Substance: DABRAFENIB MESYLATE
     Indication: MALIGNANT MELANOMA
     Dosage: 300 MG, UNK
     Route: 048
  10. TRAMETINIB [Suspect]
     Active Substance: TRAMETINIB
     Indication: MALIGNANT MELANOMA
     Dosage: 2 MG, UNK
     Route: 048
  11. NEBIVOLOL. [Concomitant]
     Active Substance: NEBIVOLOL
     Indication: HYPERTENSION
     Dosage: 1.25 OT, UNK
     Route: 048
     Dates: start: 20180207

REACTIONS (16)
  - Hypokalaemia [Recovered/Resolved]
  - Hypokalaemia [Recovered/Resolved]
  - Blood bilirubin increased [Recovered/Resolved]
  - Asthenia [Not Recovered/Not Resolved]
  - Cough [Not Recovered/Not Resolved]
  - Hyperuricaemia [Not Recovered/Not Resolved]
  - Nausea [Not Recovered/Not Resolved]
  - Asthenia [Recovered/Resolved]
  - Hypokalaemia [Not Recovered/Not Resolved]
  - Blood bilirubin increased [Recovered/Resolved]
  - Blood bilirubin increased [Recovered/Resolved]
  - Hypercholesterolaemia [Not Recovered/Not Resolved]
  - Hypokalaemia [Recovered/Resolved]
  - Nausea [Recovered/Resolved]
  - Hypomagnesaemia [Not Recovered/Not Resolved]
  - Gamma-glutamyltransferase increased [Not Recovered/Not Resolved]

NARRATIVE: CASE EVENT DATE: 20180307
